FAERS Safety Report 14806144 (Version 1)
Quarter: 2018Q2

REPORT INFORMATION
  Report Type: Spontaneous
  Country: US (occurrence: US)
  Receive Date: 20180425
  Receipt Date: 20180425
  Transmission Date: 20180711
  Serious: Yes (Other)
  Sender: FDA-Public Use
  Company Number: US-BAYER-2018-075588

PATIENT
  Age: 67 Year
  Sex: Female

DRUGS (3)
  1. HUMIRA [Suspect]
     Active Substance: ADALIMUMAB
     Indication: RHEUMATOID ARTHRITIS
     Dosage: 40 MG, Q2WK
     Route: 058
     Dates: start: 2010, end: 2010
  2. HUMIRA [Suspect]
     Active Substance: ADALIMUMAB
     Indication: RHEUMATOID ARTHRITIS
     Dosage: 40 MG, Q2WK
     Route: 058
     Dates: start: 201711, end: 201801
  3. CIPROFLOXACIN. [Suspect]
     Active Substance: CIPROFLOXACIN
     Dosage: UNK
     Route: 065
     Dates: start: 201801

REACTIONS (9)
  - Gastroenteritis viral [Recovered/Resolved]
  - Upper respiratory tract infection [Recovered/Resolved]
  - Joint stiffness [None]
  - Secretion discharge [None]
  - Abdominal pain upper [Recovered/Resolved]
  - Nausea [Recovered/Resolved]
  - Arthralgia [None]
  - Vomiting [Recovered/Resolved]
  - Productive cough [Recovered/Resolved]

NARRATIVE: CASE EVENT DATE: 2018
